FAERS Safety Report 13046168 (Version 4)
Quarter: 2017Q2

REPORT INFORMATION
  Report Type: Spontaneous
  Country: US (occurrence: US)
  Receive Date: 20161220
  Receipt Date: 20170606
  Transmission Date: 20170830
  Serious: Yes (Other)
  Sender: FDA-Public Use
  Company Number: US-PFIZER INC-2016575817

PATIENT
  Age: 73 Year
  Sex: Female

DRUGS (4)
  1. IBRANCE [Suspect]
     Active Substance: PALBOCICLIB
     Dosage: UNK
     Dates: start: 201702
  2. IBRANCE [Suspect]
     Active Substance: PALBOCICLIB
     Dosage: 125 MG, UNK
     Dates: start: 20161129
  3. IBRANCE [Suspect]
     Active Substance: PALBOCICLIB
     Dosage: UNK [125]
     Dates: start: 20161201, end: 20170208
  4. LETROZOLE. [Concomitant]
     Active Substance: LETROZOLE
     Dosage: UNK

REACTIONS (3)
  - Fatigue [Unknown]
  - Anaemia [Unknown]
  - Nausea [Unknown]
